FAERS Safety Report 11130000 (Version 2)
Quarter: 2015Q2

REPORT INFORMATION
  Report Type: Spontaneous
  Country: JP (occurrence: JP)
  Receive Date: 20150521
  Receipt Date: 20150616
  Transmission Date: 20150821
  Serious: Yes (Other)
  Sender: FDA-Public Use
  Company Number: JP-MYLANLABS-2015M1015976

PATIENT

DRUGS (2)
  1. CARBOPLATIN INJECTION 150 MG ^NK^ [Suspect]
     Active Substance: CARBOPLATIN
     Indication: UTERINE CANCER
     Dosage: AUC5, 6 COURSE
     Route: 041
  2. PACLITAXEL. [Suspect]
     Active Substance: PACLITAXEL
     Indication: UTERINE CANCER
     Dosage: 180MG/M2, 6 COURSE
     Route: 041

REACTIONS (1)
  - Acute myeloid leukaemia [Unknown]
